FAERS Safety Report 11743932 (Version 1)
Quarter: 2015Q4

REPORT INFORMATION
  Report Type: Spontaneous
  Country: AU (occurrence: AU)
  Receive Date: 20151116
  Receipt Date: 20151116
  Transmission Date: 20160304
  Serious: Yes (Death, Life-Threatening, Other)
  Sender: FDA-Public Use
  Company Number: AU-PFIZER INC-K201000918

PATIENT
  Age: 49 Year
  Sex: Female

DRUGS (3)
  1. PREDNISOLONE. [Concomitant]
     Active Substance: PREDNISOLONE
     Indication: ANAPHYLACTIC REACTION
     Dosage: 50 MG, UNK
  2. PROMETHAZINE [Suspect]
     Active Substance: PROMETHAZINE\PROMETHAZINE HYDROCHLORIDE
     Indication: ANAPHYLACTIC REACTION
     Dosage: 50 MG, SINGLE
  3. EPIPEN [Suspect]
     Active Substance: EPINEPHRINE
     Indication: ANAPHYLAXIS TREATMENT
     Dosage: 0.3 MG, SINGLE
     Route: 030

REACTIONS (8)
  - Sepsis [Not Recovered/Not Resolved]
  - Clostridial infection [Unknown]
  - Crepitations [Unknown]
  - Purulence [Unknown]
  - Gas gangrene [Fatal]
  - Injection site pain [Unknown]
  - Injection site infection [Unknown]
  - Skin discolouration [Unknown]
